FAERS Safety Report 15489410 (Version 2)
Quarter: 2018Q4

REPORT INFORMATION
  Report Type: Spontaneous
  Country: GB (occurrence: GB)
  Receive Date: 20181011
  Receipt Date: 20181012
  Transmission Date: 20190205
  Serious: Yes (Hospitalization)
  Sender: FDA-Public Use
  Company Number: GB-TEVA-2018-GB-963313

PATIENT
  Age: 71 Year
  Sex: Female

DRUGS (6)
  1. SERTRALINE [Suspect]
     Active Substance: SERTRALINE HYDROCHLORIDE
     Indication: DEPRESSION
     Dosage: 50 MILLIGRAM DAILY; EVERY MORNING
     Route: 048
  2. LERCANIDIPINE [Suspect]
     Active Substance: LERCANIDIPINE
     Indication: INTENTIONAL OVERDOSE
     Route: 065
  3. LERCANIDIPINE [Suspect]
     Active Substance: LERCANIDIPINE
     Indication: HYPERTENSION
     Route: 065
  4. MIRTAZAPINE. [Suspect]
     Active Substance: MIRTAZAPINE
     Indication: DEPRESSION
     Dosage: AT NIGHT.
     Route: 048
  5. ALCOHOL. [Concomitant]
     Active Substance: ALCOHOL
  6. MIRTAZAPINE. [Suspect]
     Active Substance: MIRTAZAPINE
     Indication: INTENTIONAL OVERDOSE
     Dosage: 90 MILLIGRAM DAILY;
     Route: 048

REACTIONS (2)
  - Intentional overdose [Recovered/Resolved]
  - Hypotension [Recovered/Resolved]

NARRATIVE: CASE EVENT DATE: 20150101
